FAERS Safety Report 9519660 (Version 12)
Quarter: 2014Q4

REPORT INFORMATION
  Report Type: Spontaneous
  Country: US (occurrence: US)
  Receive Date: 20130912
  Receipt Date: 20141202
  Transmission Date: 20150529
  Serious: Yes (Hospitalization, Disabling, Other)
  Sender: FDA-Public Use
  Company Number: US-ALLERGAN-1313465US

PATIENT
  Age: 5 Year
  Sex: Male
  Weight: 15.78 kg

DRUGS (2)
  1. BOTOX [Suspect]
     Active Substance: ONABOTULINUMTOXINA
     Indication: MUSCLE SPASTICITY
     Dosage: 80 UNITS, SINGLE
     Route: 030
     Dates: start: 20100422, end: 20100422
  2. BOTOX [Suspect]
     Active Substance: ONABOTULINUMTOXINA
     Dosage: 200 UNITS, SINGLE
     Dates: start: 20120524, end: 20120524

REACTIONS (21)
  - Dyspnoea [Unknown]
  - Secretion discharge [Recovered/Resolved]
  - Immune system disorder [Unknown]
  - Sensory disturbance [Recovered/Resolved]
  - Seizure like phenomena [Unknown]
  - Gait disturbance [Recovered/Resolved]
  - Muscle twitching [Recovered/Resolved]
  - Unresponsive to stimuli [Unknown]
  - Idiopathic angioedema [Recovered/Resolved]
  - Seizure [Unknown]
  - Dysarthria [Recovered/Resolved]
  - Musculoskeletal stiffness [Recovered/Resolved]
  - Swelling face [Recovered/Resolved]
  - Pain [Recovered/Resolved]
  - Drug hypersensitivity [Unknown]
  - Seizure [Not Recovered/Not Resolved]
  - Gait disturbance [Unknown]
  - Erythema [Recovered/Resolved]
  - Cough [Recovered/Resolved]
  - Tremor [Recovered/Resolved]
  - Vomiting [Recovered/Resolved]

NARRATIVE: CASE EVENT DATE: 20100424
